FAERS Safety Report 16575774 (Version 1)
Quarter: 2019Q3

REPORT INFORMATION
  Report Type: Spontaneous
  Country: FR (occurrence: FR)
  Receive Date: 20190716
  Receipt Date: 20190716
  Transmission Date: 20191004
  Serious: Yes (Hospitalization)
  Sender: FDA-Public Use
  Company Number: FR-BAXTER-2019BAX013690

PATIENT
  Age: 68 Year
  Sex: Male

DRUGS (2)
  1. METRONIDAZOLE BAXTER 0,5 POUR CENT, SOLUTION INJECTABLE EN POCHE [Suspect]
     Active Substance: METRONIDAZOLE
     Indication: CHOLANGITIS
     Route: 042
     Dates: start: 20161125, end: 20161206
  2. CEFOTAXIME BASE [Suspect]
     Active Substance: CEFOTAXIME SODIUM
     Indication: CHOLANGITIS
     Route: 042
     Dates: start: 20161125, end: 20161206

REACTIONS (2)
  - Vasculitis necrotising [Unknown]
  - Vascular purpura [Unknown]

NARRATIVE: CASE EVENT DATE: 20161203
